FAERS Safety Report 7164362-7 (Version None)
Quarter: 2010Q4

REPORT INFORMATION
  Report Type: 
  Country: None (occurrence: None)
  Receive Date: 20101123
  Receipt Date: 20100908
  Transmission Date: 20110411
  Serious: No
  Sender: FDA-Public Use
  Company Number: 015504

PATIENT
  Sex: Female
  Weight: 100.6985 kg

DRUGS (7)
  1. CIMZIA [Suspect]
     Indication: CROHN'S DISEASE
     Dosage: (400 MG 1X/MONTH SUBCUTANEOUS)
     Route: 058
     Dates: start: 20090101
  2. CORTIFOAM [Concomitant]
  3. MESALAMINE [Concomitant]
  4. BENTYL [Concomitant]
  5. ENTOCORT EC [Concomitant]
  6. IMODIUM MULTI-SYMPTOM RELIEF [Concomitant]
  7. IRON [Concomitant]

REACTIONS (7)
  - ABDOMINAL PAIN [None]
  - CONDITION AGGRAVATED [None]
  - DIARRHOEA HAEMORRHAGIC [None]
  - FREQUENT BOWEL MOVEMENTS [None]
  - INSOMNIA [None]
  - RETCHING [None]
  - VOMITING [None]
